FAERS Safety Report 20640138 (Version 1)
Quarter: 2022Q1

REPORT INFORMATION
  Report Type: Spontaneous
  Country: JP (occurrence: JP)
  Receive Date: 20220326
  Receipt Date: 20220326
  Transmission Date: 20220424
  Serious: Yes (Other)
  Sender: FDA-Public Use
  Company Number: JP-ONO-2021JP008518

PATIENT
  Age: 56 Year
  Sex: Male
  Weight: 84.6 kg

DRUGS (4)
  1. OPDIVO [Suspect]
     Active Substance: NIVOLUMAB
     Indication: Metastatic renal cell carcinoma
     Dosage: 240 MG/BODY (27-DEC-2019, 18-JAN-2020, 10-FEB-2020, 18-MAY-2020, 15-JUN-2020, 29-JUN-2020, 13-JUN-20
     Route: 041
     Dates: start: 20191227, end: 20201012
  2. OPDIVO [Suspect]
     Active Substance: NIVOLUMAB
     Dosage: 480 MG/BODY/ Q4W (26-OCT-2020, 30-NOV-2020, 25-JAN-2021, 22-FEB-2021, 22-MAR-2021, 19-APR-2021, 17-M
     Route: 041
     Dates: start: 20201026, end: 20210913
  3. OPDIVO [Suspect]
     Active Substance: NIVOLUMAB
     Dosage: 480 MG/BODY/Q6W (25-OCT-2021, 06-DEC-2021, 17-JAN-2022, 28-FEB-2022)
     Route: 041
     Dates: start: 20211025
  4. YERVOY [Suspect]
     Active Substance: IPILIMUMAB
     Indication: Metastatic renal cell carcinoma
     Dosage: 1 MG/KG
     Route: 041
     Dates: start: 20191227, end: 20200518

REACTIONS (5)
  - Hypothyroidism [Recovering/Resolving]
  - Non-alcoholic steatohepatitis [Recovering/Resolving]
  - Secondary adrenocortical insufficiency [Recovering/Resolving]
  - Rash [Recovered/Resolved]
  - Inappropriate schedule of product administration [Unknown]

NARRATIVE: CASE EVENT DATE: 20191229
